FAERS Safety Report 12013040 (Version 1)
Quarter: 2016Q1

REPORT INFORMATION
  Report Type: Spontaneous
  Country: US (occurrence: US)
  Receive Date: 20160205
  Receipt Date: 20160205
  Transmission Date: 20160526
  Serious: No
  Sender: FDA-Public Use
  Company Number: ALCN2016US000972

PATIENT
  Age: 69 Year
  Sex: Female

DRUGS (1)
  1. TRIMETHOPRIM/POLYMYXIN B [Suspect]
     Active Substance: POLYMYXIN B SULFATE\TRIMETHOPRIM
     Indication: EYE INFECTION
     Dosage: 1 GTT, Q6H
     Route: 047
     Dates: start: 20160124

REACTIONS (1)
  - Eye pruritus [Recovering/Resolving]

NARRATIVE: CASE EVENT DATE: 20160125
